FAERS Safety Report 20855286 (Version 1)
Quarter: 2022Q2

REPORT INFORMATION
  Report Type: Spontaneous
  Country: CA (occurrence: CA)
  Receive Date: 20220520
  Receipt Date: 20220520
  Transmission Date: 20220721
  Serious: Yes (Disabling, Other)
  Sender: FDA-Public Use
  Company Number: CA-BAYER-2022A068117

PATIENT
  Sex: Female

DRUGS (1)
  1. ESTRADIOL [Suspect]
     Active Substance: ESTRADIOL
     Indication: Product used for unknown indication
     Dosage: UNK
     Route: 062

REACTIONS (9)
  - Visual field defect [None]
  - Vision blurred [None]
  - Retinal injury [None]
  - Condition aggravated [None]
  - Optic nerve injury [None]
  - Paraesthesia [None]
  - Burning sensation [None]
  - Eye pain [None]
  - Drug interaction [None]
